FAERS Safety Report 5202737-3 (Version None)
Quarter: 2007Q1

REPORT INFORMATION
  Report Type: 
  Country: None (occurrence: None)
  Receive Date: 20070109
  Receipt Date: 20061229
  Transmission Date: 20070707
  Serious: Yes (Congenital Anomaly)
  Sender: FDA-Public Use
  Company Number: US-GILEAD-2007-0010925

PATIENT
  Sex: Male

DRUGS (4)
  1. VIREAD [Suspect]
     Route: 064
     Dates: end: 20061221
  2. EPZICOM [Concomitant]
     Route: 064
     Dates: end: 20060524
  3. VIRACEPT [Concomitant]
     Route: 064
     Dates: end: 20061221
  4. COMBIVIR [Concomitant]
     Route: 064
     Dates: start: 20060524, end: 20061221

REACTIONS (2)
  - DRUG EXPOSURE DURING PREGNANCY [None]
  - POLYDACTYLY [None]
